FAERS Safety Report 10214257 (Version 2)
Quarter: 2014Q2

REPORT INFORMATION
  Report Type: Spontaneous
  Country: BR (occurrence: BR)
  Receive Date: 20140603
  Receipt Date: 20140603
  Transmission Date: 20141212
  Serious: Yes (Other)
  Sender: FDA-Public Use
  Company Number: BR-PFIZER INC-2014142193

PATIENT
  Age: 85 Year
  Sex: Female

DRUGS (3)
  1. ZOLOFT [Suspect]
     Dosage: UNK
  2. PRADAXA [Concomitant]
     Indication: ANTICOAGULANT THERAPY
     Dosage: UNK
  3. PACO [Concomitant]
     Indication: PAIN
     Dosage: UNK

REACTIONS (3)
  - Fall [Unknown]
  - Rebound effect [Unknown]
  - Insomnia [Unknown]
